FAERS Safety Report 8010722-1 (Version None)
Quarter: 2011Q4

REPORT INFORMATION
  Report Type: 
  Country: None (occurrence: None)
  Receive Date: 20111228
  Receipt Date: 20111222
  Transmission Date: 20120403
  Serious: Yes (Hospitalization, Other)
  Sender: FDA-Public Use
  Company Number: US-VIROPHARMA INCORPORATED-20110912CINRY2281

PATIENT
  Sex: Female

DRUGS (8)
  1. BERINERT [Concomitant]
     Indication: HEREDITARY ANGIOEDEMA
     Dosage: UNKNOWN
  2. CORTISONE ACETATE [Concomitant]
     Indication: ADRENAL INSUFFICIENCY
     Dosage: UNKNOWN
     Route: 065
     Dates: start: 20110101
  3. NON ESTROGEN BIRTH CONTROL PILL [Concomitant]
     Indication: CONTRACEPTION
     Dosage: UNKNOWN
     Route: 048
  4. CINRYZE [Suspect]
     Indication: HEREDITARY ANGIOEDEMA
     Dosage: UNKNOWN
     Dates: start: 20100101, end: 20110101
  5. CINRYZE [Suspect]
     Dates: start: 20110101
  6. PANTOPRAZOLE [Concomitant]
     Indication: PRODUCT USED FOR UNKNOWN INDICATION
     Dosage: UNKNOWN
  7. BUDESONIDE-FORMOTEROL [Concomitant]
     Indication: PRODUCT USED FOR UNKNOWN INDICATION
     Dosage: UNKNOWN
  8. NORETHINDRONE [Concomitant]
     Indication: PRODUCT USED FOR UNKNOWN INDICATION
     Dosage: UNKNOWN

REACTIONS (15)
  - ENTEROCOCCAL INFECTION [None]
  - PITUITARY TUMOUR [None]
  - BACTERIAL INFECTION [None]
  - HEADACHE [None]
  - DEVICE RELATED INFECTION [None]
  - INFUSION RELATED REACTION [None]
  - DIZZINESS [None]
  - STAPHYLOCOCCAL INFECTION [None]
  - HEREDITARY ANGIOEDEMA [None]
  - CANDIDA SEPSIS [None]
  - PSEUDOMONAL SEPSIS [None]
  - BACTERAEMIA [None]
  - DRUG INEFFECTIVE [None]
  - INCORRECT DRUG ADMINISTRATION RATE [None]
  - CANDIDIASIS [None]
